FAERS Safety Report 8849765 (Version 1)
Quarter: 2012Q4

REPORT INFORMATION
  Report Type: 
  Country: US (occurrence: US)
  Receive Date: 20121019
  Receipt Date: 20121019
  Transmission Date: 20130627
  Serious: Yes (Other)
  Sender: FDA-Public Use
  Company Number: PHEH2012US018648

PATIENT
  Age: 64 None
  Sex: Female

DRUGS (5)
  1. GILENYA [Suspect]
     Indication: MULTIPLE SCLEROSIS
     Dosage: 0.5 mg, QD
     Route: 048
     Dates: start: 20110112
  2. MAXZIDE [Concomitant]
     Indication: HYPERTENSION
     Dosage: 25 g, QD
     Route: 048
  3. SOMA [Concomitant]
     Indication: MUSCLE SPASMS
     Dosage: 350 mg, BID
     Route: 048
  4. TOPAMAX [Concomitant]
     Indication: NEURALGIA
     Dosage: 25 mg, BID
     Route: 048
  5. FLONASE [Concomitant]
     Indication: RHINITIS ALLERGIC
     Dosage: UNK
     Route: 045

REACTIONS (4)
  - Central nervous system lesion [Unknown]
  - Chills [Not Recovered/Not Resolved]
  - Pyrexia [Recovering/Resolving]
  - Hot flush [Not Recovered/Not Resolved]
